FAERS Safety Report 15103559 (Version 1)
Quarter: 2018Q3

REPORT INFORMATION
  Report Type: Report from Study
  Country: CA (occurrence: CA)
  Receive Date: 20180703
  Receipt Date: 20180703
  Transmission Date: 20181010
  Serious: Yes (Other)
  Sender: FDA-Public Use
  Company Number: CA-JNJFOC-20180638902

PATIENT
  Sex: Male

DRUGS (1)
  1. STELARA [Suspect]
     Active Substance: USTEKINUMAB
     Indication: PSORIASIS
     Dosage: STRENGTH = 45 MG
     Route: 058
     Dates: start: 20121015

REACTIONS (4)
  - Balance disorder [Recovering/Resolving]
  - Patella fracture [Recovering/Resolving]
  - Concussion [Recovered/Resolved]
  - Accident at work [Recovered/Resolved]

NARRATIVE: CASE EVENT DATE: 2014
